FAERS Safety Report 8748225 (Version 2)
Quarter: 2012Q4

REPORT INFORMATION
  Report Type: 
  Country: FR (occurrence: FR)
  Receive Date: 20120827
  Receipt Date: 20120925
  Transmission Date: 20130627
  Serious: Yes (Death, Hospitalization)
  Sender: FDA-Public Use
  Company Number: FR-ABBOTT-12P-056-0972059-00

PATIENT
  Age: 34 Year
  Sex: Male

DRUGS (5)
  1. DEPAKINE SYRUP [Suspect]
     Indication: PRODUCT USED FOR UNKNOWN INDICATION
     Route: 048
     Dates: start: 201206, end: 20120625
  2. LEPTICUR [Suspect]
     Indication: PRODUCT USED FOR UNKNOWN INDICATION
     Route: 048
     Dates: start: 20120605, end: 20120625
  3. QUETIAPINE [Suspect]
     Indication: PSYCHOTIC DISORDER
     Dosage: Daily
     Route: 048
     Dates: start: 20120605, end: 20120625
  4. LOXAPAC [Suspect]
     Indication: AGGRESSION
     Dosage: 275 drops daily
     Route: 048
     Dates: start: 20120614, end: 20120625
  5. VALIUM [Suspect]
     Indication: PRODUCT USED FOR UNKNOWN INDICATION
     Route: 048
     Dates: start: 201206, end: 20120625

REACTIONS (3)
  - Ileus [Fatal]
  - Intestinal ischaemia [Fatal]
  - Gastrointestinal necrosis [Fatal]
